FAERS Safety Report 11627586 (Version 1)
Quarter: 2015Q4

REPORT INFORMATION
  Report Type: Spontaneous
  Country: US (occurrence: US)
  Receive Date: 20151014
  Receipt Date: 20151014
  Transmission Date: 20160304
  Serious: No
  Sender: FDA-Public Use
  Company Number: US-AMGEN-USASP2015104329

PATIENT
  Age: 68 Year
  Sex: Female

DRUGS (3)
  1. MELOXICAM. [Concomitant]
     Active Substance: MELOXICAM
     Dosage: UNK
  2. ENBREL [Suspect]
     Active Substance: ETANERCEPT
     Indication: RHEUMATOID ARTHRITIS
     Dosage: 50 MG, WEEKLY
     Route: 058
     Dates: start: 20150817, end: 201509
  3. SYNTHROID [Concomitant]
     Active Substance: LEVOTHYROXINE SODIUM
     Dosage: UNK

REACTIONS (1)
  - No therapeutic response [Not Recovered/Not Resolved]

NARRATIVE: CASE EVENT DATE: 2015
